FAERS Safety Report 5146787-4 (Version None)
Quarter: 2006Q4

REPORT INFORMATION
  Report Type: 
  Country: None (occurrence: None)
  Receive Date: 20061107
  Receipt Date: 20061107
  Transmission Date: 20070319
  Serious: Yes (Hospitalization, Other)
  Sender: FDA-Public Use
  Company Number: None

PATIENT
  Age: 78 Year
  Sex: Female

DRUGS (16)
  1. LEVOFLOXACIN [Suspect]
     Indication: DIVERTICULITIS
     Dosage: 500MG DAILY IV BOLUS
     Route: 040
     Dates: start: 20060517, end: 20060518
  2. LEVOFLOXACIN [Suspect]
     Indication: PANCREATITIS
     Dosage: 500MG DAILY IV BOLUS
     Route: 040
     Dates: start: 20060517, end: 20060518
  3. METRONIDAZOLE [Suspect]
     Indication: DIVERTICULITIS
     Dosage: 500MG EVERY 8 HOURS IV BOLUS
     Route: 040
     Dates: start: 20060517, end: 20060531
  4. METRONIDAZOLE [Suspect]
     Indication: PANCREATITIS
     Dosage: 500MG EVERY 8 HOURS IV BOLUS
     Route: 040
     Dates: start: 20060517, end: 20060531
  5. MYOFLEX [Concomitant]
  6. REGULAR INSULIN [Concomitant]
  7. HEPARIN [Concomitant]
  8. ACETAMINOPHEN [Concomitant]
  9. QUESTRAN [Concomitant]
  10. ONDANSETRON [Concomitant]
  11. ESOMEPRAZOLE MAGNESIUM [Concomitant]
  12. ATENOLOL [Concomitant]
  13. OLANZAPINE [Concomitant]
  14. HYDROCODONE BITARTRATE + ACETAMINOPHEN [Concomitant]
  15. SIMETHICONE [Concomitant]
  16. ERYTHROPOETIN [Concomitant]

REACTIONS (5)
  - CONVULSION [None]
  - HYPOCALCAEMIA [None]
  - MYOCLONUS [None]
  - POSTICTAL STATE [None]
  - PYREXIA [None]
